FAERS Safety Report 25857479 (Version 1)
Quarter: 2025Q3

REPORT INFORMATION
  Report Type: Spontaneous
  Country: EU (occurrence: EU)
  Receive Date: 20250929
  Receipt Date: 20250929
  Transmission Date: 20251020
  Serious: Yes (Other)
  Sender: CELLTRION
  Company Number: EU-AMGEN-ITASP2025181787

PATIENT

DRUGS (15)
  1. BEVACIZUMAB [Suspect]
     Active Substance: BEVACIZUMAB
     Indication: Rectosigmoid cancer
     Route: 065
     Dates: start: 2025
  2. BEVACIZUMAB [Suspect]
     Active Substance: BEVACIZUMAB
     Indication: Metastases to eye
  3. BEVACIZUMAB [Suspect]
     Active Substance: BEVACIZUMAB
     Indication: Colorectal adenocarcinoma
  4. PANITUMUMAB [Suspect]
     Active Substance: PANITUMUMAB
     Indication: Rectosigmoid cancer
     Route: 065
     Dates: start: 20241203
  5. PANITUMUMAB [Suspect]
     Active Substance: PANITUMUMAB
     Indication: Metastases to liver
  6. PANITUMUMAB [Suspect]
     Active Substance: PANITUMUMAB
     Indication: Colorectal adenocarcinoma
  7. FLUOROURACIL\LEUCOVORIN CALCIUM\OXALIPLATIN [Concomitant]
     Active Substance: FLUOROURACIL\LEUCOVORIN CALCIUM\OXALIPLATIN
     Indication: Rectosigmoid cancer
     Dosage: UNK UNK, Q2WEEKS
     Dates: start: 20241203
  8. FLUOROURACIL\LEUCOVORIN CALCIUM\OXALIPLATIN [Concomitant]
     Active Substance: FLUOROURACIL\LEUCOVORIN CALCIUM\OXALIPLATIN
     Indication: Metastases to liver
  9. FLUOROURACIL\LEUCOVORIN CALCIUM\OXALIPLATIN [Concomitant]
     Active Substance: FLUOROURACIL\LEUCOVORIN CALCIUM\OXALIPLATIN
     Indication: Colorectal adenocarcinoma
  10. CAPECITABINE [Concomitant]
     Active Substance: CAPECITABINE
     Indication: Rectosigmoid cancer
     Route: 048
     Dates: start: 2025
  11. CAPECITABINE [Concomitant]
     Active Substance: CAPECITABINE
     Indication: Metastases to eye
  12. CAPECITABINE [Concomitant]
     Active Substance: CAPECITABINE
     Indication: Colorectal adenocarcinoma
  13. IRINOTECAN [Concomitant]
     Active Substance: IRINOTECAN
     Indication: Rectosigmoid cancer
     Route: 042
     Dates: start: 2025
  14. IRINOTECAN [Concomitant]
     Active Substance: IRINOTECAN
     Indication: Metastases to eye
  15. IRINOTECAN [Concomitant]
     Active Substance: IRINOTECAN
     Indication: Colorectal adenocarcinoma

REACTIONS (2)
  - Metastases to eye [Unknown]
  - Acquired gene mutation [Unknown]

NARRATIVE: CASE EVENT DATE: 20250101
